FAERS Safety Report 14272125 (Version 2)
Quarter: 2017Q4

REPORT INFORMATION
  Report Type: Report from Study
  Country: US (occurrence: US)
  Receive Date: 20171212
  Receipt Date: 20171229
  Transmission Date: 20180321
  Serious: Yes (Hospitalization, Other)
  Sender: FDA-Public Use
  Company Number: US-GILEAD-2017-0303365

PATIENT
  Age: 39 Year
  Sex: Male
  Weight: 76 kg

DRUGS (21)
  1. DOCUSATE [Concomitant]
     Active Substance: DOCUSATE
  2. POTASSIUM CHLORIDE. [Concomitant]
     Active Substance: POTASSIUM CHLORIDE
  3. BISACODYL. [Concomitant]
     Active Substance: BISACODYL
  4. HYDROXYZINE [Concomitant]
     Active Substance: HYDROXYZINE HYDROCHLORIDE
  5. PREGABALIN. [Concomitant]
     Active Substance: PREGABALIN
  6. BACLOFEN. [Concomitant]
     Active Substance: BACLOFEN
  7. AMBRISENTAN [Suspect]
     Active Substance: AMBRISENTAN
     Indication: PRODUCT USED FOR UNKNOWN INDICATION
     Dosage: 5 MG, QD
     Route: 065
     Dates: start: 20161007
  8. DIGOXIN. [Concomitant]
     Active Substance: DIGOXIN
  9. TYVASO [Suspect]
     Active Substance: TREPROSTINIL
     Indication: PRODUCT USED FOR UNKNOWN INDICATION
     Route: 065
  10. LACTOBACILLUS ACIDOPHILUS [Concomitant]
     Active Substance: LACTOBACILLUS ACIDOPHILUS
  11. QUETIAPINE. [Concomitant]
     Active Substance: QUETIAPINE
  12. RIVAROXABAN [Concomitant]
     Active Substance: RIVAROXABAN
  13. ALPRAZOLAM. [Concomitant]
     Active Substance: ALPRAZOLAM
  14. CHOLECALCIFEROL [Concomitant]
     Active Substance: CHOLECALCIFEROL
  15. DOXEPIN [Concomitant]
     Active Substance: DOXEPIN
  16. FERROUS SULFATE. [Concomitant]
     Active Substance: FERROUS SULFATE
  17. FUROSEMIDE. [Concomitant]
     Active Substance: FUROSEMIDE
  18. RAMELTEON [Concomitant]
     Active Substance: RAMELTEON
  19. SILDENAFIL. [Concomitant]
     Active Substance: SILDENAFIL
  20. TRAMADOL. [Concomitant]
     Active Substance: TRAMADOL
  21. METRONIDAZOLE. [Concomitant]
     Active Substance: METRONIDAZOLE

REACTIONS (4)
  - Osteomyelitis [Unknown]
  - Pulmonary arterial hypertension [Not Recovered/Not Resolved]
  - Oxygen saturation decreased [Not Recovered/Not Resolved]
  - Decubitus ulcer [Unknown]
